FAERS Safety Report 5044972-3 (Version None)
Quarter: 2006Q3

REPORT INFORMATION
  Report Type: 
  Country: None (occurrence: None)
  Receive Date: 20060707
  Receipt Date: 20060627
  Transmission Date: 20061208
  Serious: Yes (Hospitalization)
  Sender: FDA-Public Use
  Company Number: JP-JNJFOC-20060606392

PATIENT
  Sex: Female
  Weight: 49 kg

DRUGS (35)
  1. REMICADE [Suspect]
     Route: 042
  2. REMICADE [Suspect]
     Route: 042
  3. REMICADE [Suspect]
     Route: 042
  4. REMICADE [Suspect]
     Route: 042
  5. REMICADE [Suspect]
     Route: 042
  6. REMICADE [Suspect]
     Route: 042
  7. REMICADE [Suspect]
     Route: 042
  8. REMICADE [Suspect]
     Route: 042
  9. REMICADE [Suspect]
     Route: 042
  10. REMICADE [Suspect]
     Route: 042
  11. REMICADE [Suspect]
     Route: 042
  12. REMICADE [Suspect]
     Route: 042
  13. REMICADE [Suspect]
     Route: 042
  14. REMICADE [Suspect]
     Route: 042
  15. REMICADE [Suspect]
     Route: 042
  16. REMICADE [Suspect]
     Indication: CROHN'S DISEASE
     Route: 042
  17. PREDNISOLONE [Concomitant]
     Indication: CROHN'S DISEASE
     Route: 048
  18. PENTASA [Concomitant]
     Indication: CROHN'S DISEASE
     Route: 048
  19. MARZULENE-S [Concomitant]
     Indication: CROHN'S DISEASE
     Route: 048
  20. BIOFERMIN [Concomitant]
     Indication: CROHN'S DISEASE
     Route: 048
  21. ALPRAZOLAM [Concomitant]
     Route: 048
  22. TETRAMIDE [Concomitant]
     Route: 048
  23. LORAMET [Concomitant]
     Route: 048
  24. ARTIST [Concomitant]
     Route: 048
  25. ALDACTONE [Concomitant]
     Route: 048
  26. HALFDIGOXIN [Concomitant]
     Route: 048
  27. DIART [Concomitant]
     Route: 048
  28. BAKTAR [Concomitant]
     Indication: INFECTION PROPHYLAXIS
     Route: 048
  29. PANCREATIN TRIPLE STRENGTH CAP [Concomitant]
     Route: 048
  30. KAMAG G [Concomitant]
     Route: 048
  31. SOLANAX [Concomitant]
     Route: 048
  32. ASPARA K [Concomitant]
     Route: 048
  33. IMURAN [Concomitant]
     Indication: CROHN'S DISEASE
     Route: 048
  34. GASTER D [Concomitant]
     Indication: CROHN'S DISEASE
     Route: 048
  35. ELENTAL [Concomitant]
     Route: 048

REACTIONS (9)
  - ABDOMINAL PAIN [None]
  - CHEST DISCOMFORT [None]
  - HEADACHE [None]
  - HOT FLUSH [None]
  - INFUSION RELATED REACTION [None]
  - NAUSEA [None]
  - PALPITATIONS [None]
  - PANCREATITIS ACUTE [None]
  - VOMITING [None]
